FAERS Safety Report 15464431 (Version 1)
Quarter: 2018Q4

REPORT INFORMATION
  Report Type: Report from Study
  Country: US (occurrence: US)
  Receive Date: 20181004
  Receipt Date: 20181004
  Transmission Date: 20190204
  Serious: Yes (Hospitalization)
  Sender: FDA-Public Use
  Company Number: US-EISAI MEDICAL RESEARCH-EC-2018-044820

PATIENT
  Age: 54 Year
  Sex: Female
  Weight: 78 kg

DRUGS (9)
  1. IBUPROFEN. [Concomitant]
     Active Substance: IBUPROFEN
  2. NORVASC [Concomitant]
     Active Substance: AMLODIPINE BESYLATE
  3. HYDRALAZINE [Concomitant]
     Active Substance: HYDRALAZINE HYDROCHLORIDE
  4. COZAAR [Concomitant]
     Active Substance: LOSARTAN POTASSIUM
  5. ATORVASTATIN CALCIUM. [Concomitant]
     Active Substance: ATORVASTATIN CALCIUM
  6. ASPIRIN. [Concomitant]
     Active Substance: ASPIRIN
  7. SERTRALINE HCL [Concomitant]
     Active Substance: SERTRALINE HYDROCHLORIDE
  8. LENVIMA [Suspect]
     Active Substance: LENVATINIB
     Indication: THYROID CANCER
     Route: 048
     Dates: start: 20180829, end: 201809
  9. LEVOTHYROXINE SODIUM. [Concomitant]
     Active Substance: LEVOTHYROXINE SODIUM

REACTIONS (6)
  - Blood pressure increased [Unknown]
  - Headache [Unknown]
  - Nausea [Not Recovered/Not Resolved]
  - Blood pressure fluctuation [Unknown]
  - Cough [Unknown]
  - Chest pain [Unknown]

NARRATIVE: CASE EVENT DATE: 2018
